FAERS Safety Report 10078714 (Version 2)
Quarter: 2014Q2

REPORT INFORMATION
  Report Type: Spontaneous
  Country: IE (occurrence: IE)
  Receive Date: 20140415
  Receipt Date: 20140415
  Transmission Date: 20141212
  Serious: Yes (Hospitalization)
  Sender: FDA-Public Use
  Company Number: IE-MPIJNJ-2014JNJ000829

PATIENT
  Sex: 0

DRUGS (17)
  1. VELCADE [Suspect]
     Indication: PLASMA CELL MYELOMA
     Dosage: 1 UNK, UNK
     Route: 058
     Dates: start: 20110712
  2. ALLOPURINOL [Concomitant]
  3. NSA [Concomitant]
     Dosage: UNK
  4. BISOPROLOL [Concomitant]
  5. VALTREX [Concomitant]
  6. MIRALAX                            /00754501/ [Concomitant]
  7. MYCOSTATIN [Concomitant]
  8. ZOLON [Concomitant]
  9. GALFER [Concomitant]
  10. MOTILIUM                           /00498201/ [Concomitant]
  11. SEPTRIN [Concomitant]
  12. STEMETIL                           /00013301/ [Concomitant]
  13. LYRICA [Concomitant]
  14. TRAMADOL [Concomitant]
  15. COMBIVENT [Concomitant]
  16. ISTIN [Concomitant]
  17. FOLIC ACID [Concomitant]

REACTIONS (4)
  - Lower respiratory tract infection [Recovering/Resolving]
  - Fungal infection [Unknown]
  - Drug dose omission [Unknown]
  - Furuncle [Unknown]
